FAERS Safety Report 16577402 (Version 2)
Quarter: 2019Q3

REPORT INFORMATION
  Report Type: Report from Study
  Country: US (occurrence: US)
  Receive Date: 20190716
  Receipt Date: 20190729
  Transmission Date: 20191004
  Serious: Yes (Other)
  Sender: FDA-Public Use
  Company Number: US-ROCHE-2350755

PATIENT
  Age: 34 Year
  Sex: Female
  Weight: 74 kg

DRUGS (8)
  1. EFFEXOR [Concomitant]
     Active Substance: VENLAFAXINE HYDROCHLORIDE
     Indication: DEPRESSION
  2. TRINTELLIX [Concomitant]
     Active Substance: VORTIOXETINE HYDROBROMIDE
     Indication: DEPRESSION
     Route: 048
     Dates: start: 2019
  3. BACLOFEN. [Concomitant]
     Active Substance: BACLOFEN
     Indication: MUSCLE SPASMS
  4. TRAZODONE [Concomitant]
     Active Substance: TRAZODONE HYDROCHLORIDE
  5. OCREVUS [Suspect]
     Active Substance: OCRELIZUMAB
     Indication: RELAPSING-REMITTING MULTIPLE SCLEROSIS
     Dosage: 06/SEP/2017, 20/SEP/2017, (SPLIT DOSE)
     Route: 042
  6. CELEXA [Concomitant]
     Active Substance: CITALOPRAM HYDROBROMIDE
     Indication: DEPRESSION
     Route: 065
  7. TEMAZEPAM. [Concomitant]
     Active Substance: TEMAZEPAM
  8. OCREVUS [Suspect]
     Active Substance: OCRELIZUMAB
     Dosage: 08/MAR/2018, 30/AUG/2018, 21/FEB/2019 (FULL DOSE)
     Route: 042

REACTIONS (6)
  - Gait disturbance [Not Recovered/Not Resolved]
  - Impaired healing [Unknown]
  - Rash [Not Recovered/Not Resolved]
  - Osteonecrosis [Not Recovered/Not Resolved]
  - Major depression [Unknown]
  - Weight increased [Unknown]

NARRATIVE: CASE EVENT DATE: 201902
